FAERS Safety Report 6573573-0 (Version None)
Quarter: 2010Q1

REPORT INFORMATION
  Report Type: 
  Country: None (occurrence: None)
  Receive Date: 20100208
  Receipt Date: 20100203
  Transmission Date: 20100710
  Serious: Yes (Other)
  Sender: FDA-Public Use
  Company Number: FR-TEVA-208917ISR

PATIENT
  Sex: Female

DRUGS (1)
  1. AMOXICILLIN [Suspect]
     Indication: TONSILLITIS
     Route: 048
     Dates: start: 20090822, end: 20090827

REACTIONS (1)
  - DERMATITIS BULLOUS [None]
